FAERS Safety Report 7213797-2 (Version None)
Quarter: 2011Q1

REPORT INFORMATION
  Report Type: 
  Country: None (occurrence: None)
  Receive Date: 20110106
  Receipt Date: 20101230
  Transmission Date: 20110831
  Serious: Yes (Other)
  Sender: FDA-Public Use
  Company Number: US-JNJCH-2011000222

PATIENT
  Age: 32 Year
  Sex: Female
  Weight: 64.9 kg

DRUGS (1)
  1. LISTERINE WHITENING PLUS RESTORING FLUORIDE RINSE [Suspect]
     Indication: DENTAL DISORDER PROPHYLAXIS
     Dosage: TEXT:ALMOST A CAPFUL ONCE DAILY
     Route: 048
     Dates: start: 20101208, end: 20101221

REACTIONS (2)
  - GINGIVAL BLISTER [None]
  - APPLICATION SITE BURN [None]
